FAERS Safety Report 11327715 (Version 2)
Quarter: 2015Q3

REPORT INFORMATION
  Report Type: Spontaneous
  Country: JP (occurrence: JP)
  Receive Date: 20150731
  Receipt Date: 20150814
  Transmission Date: 20151125
  Serious: Yes (Death, Hospitalization, Other)
  Sender: FDA-Public Use
  Company Number: JP-B.I. PHARMACEUTICALS,INC./RIDGEFIELD-2015-BI-40520GD

PATIENT
  Sex: Male

DRUGS (7)
  1. MIRAPEX [Suspect]
     Active Substance: PRAMIPEXOLE DIHYDROCHLORIDE
     Indication: PARKINSON^S DISEASE
     Dosage: 3 MG
     Route: 065
     Dates: start: 2012
  2. AMLODIN [Concomitant]
     Active Substance: AMLODIPINE BESYLATE
     Indication: HYPERTENSION
     Route: 065
     Dates: end: 201409
  3. SIFROL [Suspect]
     Active Substance: PRAMIPEXOLE
     Dosage: 2.5 MG
     Route: 065
     Dates: start: 2006
  4. SIFROL [Suspect]
     Active Substance: PRAMIPEXOLE
     Dosage: 3 MG
     Route: 065
     Dates: start: 2008, end: 2012
  5. FP [Concomitant]
     Active Substance: SELEGILINE HYDROCHLORIDE
     Indication: PARKINSON^S DISEASE
     Dosage: 2.5 MG
     Route: 065
     Dates: start: 2003, end: 2014
  6. NEODOPASTON [Concomitant]
     Active Substance: CARBIDOPA\LEVODOPA
     Indication: PARKINSON^S DISEASE
     Dosage: 300 MG
     Route: 065
     Dates: start: 19990416, end: 2014
  7. SIFROL [Suspect]
     Active Substance: PRAMIPEXOLE
     Indication: PARKINSON^S DISEASE
     Dosage: 2 MG
     Route: 065
     Dates: start: 2005, end: 2012

REACTIONS (27)
  - Arthralgia [Unknown]
  - Pulmonary embolism [Unknown]
  - Blood pressure decreased [Unknown]
  - Dysphagia [Unknown]
  - Akinesia [Unknown]
  - Death [Fatal]
  - Dyspnoea [Unknown]
  - Dysphagia [Unknown]
  - Hypoglycaemia [Unknown]
  - Anaemia [Unknown]
  - Gastrooesophageal reflux disease [Unknown]
  - Anaemia [Unknown]
  - Back pain [Unknown]
  - Back pain [Unknown]
  - Pleural effusion [Unknown]
  - Decubitus ulcer [Unknown]
  - Fall [Unknown]
  - Nutritional condition abnormal [Unknown]
  - Joint contracture [Unknown]
  - Respiratory failure [Unknown]
  - Musculoskeletal pain [Unknown]
  - Compression fracture [Unknown]
  - Nocturnal dyspnoea [Unknown]
  - Gastritis [Unknown]
  - Physical disability [Unknown]
  - Pneumonia [Unknown]
  - Oedema peripheral [Unknown]

NARRATIVE: CASE EVENT DATE: 2006
